FAERS Safety Report 7174128 (Version 2)
Quarter: 2013Q1

REPORT INFORMATION
  Report Type: Spontaneous
  Country: JP (occurrence: None)
  Receive Date: 20091029
  Receipt Date: 20121219
  Transmission Date: 20140127
  Serious: Yes (Hospitalization, Other)
  Sender: FDA-Public Use
  Company Number: 2008JP005078

PATIENT
  Age: 2 Year
  Sex: Female
  Weight: 10.7 kg

DRUGS (9)
  1. PROGRAF [Suspect]
     Indication: RENAL TRANSPLANT
     Route: 048
     Dates: end: 201202
  2. MEDROL [Concomitant]
  3. CELLCEPT [Concomitant]
  4. LISINOPRIL [Concomitant]
  5. INCREMIN (CYANOCOBALAMIN) [Concomitant]
  6. SODIUM CHLORIDE (SODIUM CHLORIDE) [Concomitant]
  7. SULFAMETHOXAZOLE AND TRIMETHOPRIM [Concomitant]
  8. SIMULECT [Concomitant]
  9. DENOSINE /00784201/ (GANCICLOVIR) [Concomitant]

REACTIONS (9)
  - Cytomegalovirus hepatitis [None]
  - Renal tubular atrophy [None]
  - BK virus infection [None]
  - Epstein-Barr viraemia [None]
  - Blood creatine increased [None]
  - Kidney fibrosis [None]
  - Complications of transplanted kidney [None]
  - Product contamination [None]
  - Leiomyoma [None]
